FAERS Safety Report 8152519-8 (Version None)
Quarter: 2012Q1

REPORT INFORMATION
  Report Type: 
  Country: None (occurrence: None)
  Receive Date: 20120221
  Receipt Date: 20120215
  Transmission Date: 20120608
  Serious: Yes (Hospitalization)
  Sender: FDA-Public Use
  Company Number: ES-BRISTOL-MYERS SQUIBB COMPANY-16367518

PATIENT
  Sex: Female

DRUGS (7)
  1. ACYCLOVIR [Concomitant]
     Dates: start: 20111107
  2. AZITHROMYCIN [Concomitant]
     Dates: start: 20111216
  3. DASATINIB [Suspect]
     Indication: ACUTE LYMPHOCYTIC LEUKAEMIA
     Dosage: DRUG INTERRUPTED ON 20JAN2012
     Route: 048
     Dates: start: 20120116, end: 20120120
  4. PREDNISONE [Concomitant]
     Indication: GRAFT VERSUS HOST DISEASE
     Dates: start: 20111216
  5. SANDIMMUNE [Concomitant]
     Indication: GRAFT VERSUS HOST DISEASE
     Dates: start: 20111216
  6. OMEPRAZOLE [Concomitant]
     Dates: start: 20111107
  7. SEPTRIN FORTE [Concomitant]
     Dates: start: 20111107

REACTIONS (3)
  - RESPIRATORY FAILURE [None]
  - PERICARDIAL EFFUSION [None]
  - PLEURAL EFFUSION [None]
